FAERS Safety Report 5535975-0 (Version None)
Quarter: 2007Q4

REPORT INFORMATION
  Report Type: 
  Country: None (occurrence: None)
  Receive Date: 20071120
  Receipt Date: 20070806
  Transmission Date: 20080405
  Serious: No
  Sender: FDA-Public Use
  Company Number: WAES 0708USA01137

PATIENT
  Age: 72 Year
  Sex: Male

DRUGS (13)
  1. JANUVIA [Suspect]
     Indication: DIABETES MELLITUS
     Dosage: 50 MG/DAILY/PO
     Route: 048
  2. ADVAIR DISKUS 100/50 [Concomitant]
  3. FOLTX [Concomitant]
  4. IMDUR [Concomitant]
  5. LASIX [Concomitant]
  6. NEXIUM [Concomitant]
  7. PLAVIX [Concomitant]
  8. SINEMET [Concomitant]
  9. TOPROL-XL [Concomitant]
  10. ZANTAC [Concomitant]
  11. BACLOFEN [Concomitant]
  12. DIGOXIN [Concomitant]
  13. NITROGLYCERIN [Concomitant]

REACTIONS (1)
  - DRUG INEFFECTIVE [None]
